FAERS Safety Report 9596211 (Version 2)
Quarter: 2013Q4

REPORT INFORMATION
  Report Type: Spontaneous
  Country: US (occurrence: US)
  Receive Date: 20131004
  Receipt Date: 20131004
  Transmission Date: 20140711
  Serious: Yes (Hospitalization, Other)
  Sender: FDA-Public Use
  Company Number: US-009507513-2009SP018943

PATIENT
  Sex: Female
  Weight: 86.18 kg

DRUGS (7)
  1. NUVARING [Suspect]
     Indication: OVARIAN CYST
     Dates: start: 20040826, end: 200512
  2. NUVARING [Suspect]
     Indication: PREMENSTRUAL SYNDROME
  3. MIDRIN [Concomitant]
     Indication: MIGRAINE
  4. GUAIFENESIN (+) PHENYLEPHRINE HYDROCHLORIDE [Concomitant]
     Indication: PRODUCT USED FOR UNKNOWN INDICATION
     Dates: start: 200512
  5. VALTREX [Concomitant]
     Indication: PRODUCT USED FOR UNKNOWN INDICATION
  6. OXYCODONE [Concomitant]
     Indication: PRODUCT USED FOR UNKNOWN INDICATION
  7. VICKS DAYQUIL (ACETAMINOPHEN (+) DEXTROMETHORPHAN HYDROBROMIDE (+) GUA [Concomitant]
     Indication: PRODUCT USED FOR UNKNOWN INDICATION
     Dosage: UNK UNK, PRN

REACTIONS (11)
  - Syncope [Recovered/Resolved]
  - Intestinal polyp [Unknown]
  - Cholelithiasis [Unknown]
  - Ovarian cancer [Unknown]
  - Pulmonary embolism [Recovered/Resolved]
  - Blood pressure increased [Unknown]
  - Off label use [Recovered/Resolved]
  - Hiatus hernia [Unknown]
  - Anxiety [Unknown]
  - Oedema peripheral [Unknown]
  - Feeling hot [Unknown]
